FAERS Safety Report 5814625-X (Version None)
Quarter: 2008Q3

REPORT INFORMATION
  Report Type: 
  Country: None (occurrence: None)
  Receive Date: 20080718
  Receipt Date: 20071019
  Transmission Date: 20090109
  Serious: No
  Sender: FDA-Public Use
  Company Number: US-KINGPHARMUSA00001-K200701357

PATIENT

DRUGS (2)
  1. LEVOXYL [Suspect]
     Indication: THYROID DISORDER
     Dosage: 125 MCG, QD
  2. BLOOD PRESSURE TABLET [Concomitant]
     Indication: BLOOD PRESSURE

REACTIONS (2)
  - NERVOUSNESS [None]
  - PALPITATIONS [None]
